FAERS Safety Report 16211776 (Version 1)
Quarter: 2019Q2

REPORT INFORMATION
  Report Type: Spontaneous
  Country: US (occurrence: US)
  Receive Date: 20190417
  Receipt Date: 20190417
  Transmission Date: 20190711
  Serious: Yes (Other)
  Sender: FDA-Public Use
  Company Number: None

PATIENT
  Age: 81 Year
  Sex: Male
  Weight: 131.8 kg

DRUGS (13)
  1. LISINOPRIL. [Concomitant]
     Active Substance: LISINOPRIL
  2. ERLEADA [Suspect]
     Active Substance: APALUTAMIDE
     Indication: NEOPLASM PROSTATE
     Route: 048
     Dates: start: 20181015
  3. TYLENOL [Concomitant]
     Active Substance: ACETAMINOPHEN
  4. ASPIRIN. [Concomitant]
     Active Substance: ASPIRIN
  5. ELIGARD [Concomitant]
     Active Substance: LEUPROLIDE ACETATE
  6. MUPIROCIN. [Concomitant]
     Active Substance: MUPIROCIN
  7. OXYCODONE [Concomitant]
     Active Substance: OXYCODONE
  8. ECONAZOLE. [Concomitant]
     Active Substance: ECONAZOLE NITRATE
  9. GLUCOSAMINE COMPLEX [Concomitant]
     Active Substance: GLUCOSAMINE\GLUCOSAMINE SULFATE
  10. COLCHICINE. [Concomitant]
     Active Substance: COLCHICINE
  11. FLONASE [Concomitant]
     Active Substance: FLUTICASONE PROPIONATE
  12. CASODEX [Concomitant]
     Active Substance: BICALUTAMIDE
  13. LORAZEPAM. [Concomitant]
     Active Substance: LORAZEPAM

REACTIONS (1)
  - Fatigue [None]
